FAERS Safety Report 7867414-9 (Version None)
Quarter: 2011Q4

REPORT INFORMATION
  Report Type: 
  Country: None (occurrence: None)
  Receive Date: 20111028
  Receipt Date: 20111020
  Transmission Date: 20120403
  Serious: Yes (Death, Hospitalization, Other)
  Sender: FDA-Public Use
  Company Number: US-BAYER-200940614NA

PATIENT
  Age: 56 Year
  Sex: Male
  Weight: 91 kg

DRUGS (13)
  1. METOPROLOL TARTRATE [Concomitant]
     Dosage: 50 MG, BID
     Route: 048
     Dates: start: 20010418
  2. TRASYLOL [Suspect]
     Indication: CARDIAC MYXOMA
     Dosage: 1/2 DOSE, UNK (LOADING)
     Route: 042
     Dates: start: 20010424
  3. PROTAMINE SULFATE [Concomitant]
     Dosage: 290 MG, UNK
     Route: 042
     Dates: start: 20010424
  4. TRASYLOL [Suspect]
     Indication: MITRAL VALVE REPAIR
     Dosage: 1 MILLION KIU PUMP PRIME
     Route: 042
     Dates: start: 20010424
  5. ACETYLSALICYLIC ACID SRT [Concomitant]
     Dosage: 325 MG, QD
     Route: 048
     Dates: start: 20010418
  6. LISINOPRIL [Concomitant]
     Dosage: 20 MG, QD
     Route: 048
     Dates: start: 20010419
  7. MANNITOL [Concomitant]
     Dosage: UNK
     Dates: start: 20010424
  8. GLIPIZIDE [Concomitant]
     Dosage: 5 MG, QD
     Route: 048
     Dates: start: 20010418
  9. BUPROPION HCL [Concomitant]
     Dosage: 150 MG, BID
     Route: 048
     Dates: start: 20010418
  10. HEPARIN [Concomitant]
     Dosage: 37000 U, UNK
     Route: 042
     Dates: start: 20010424
  11. CARDIOPLEGIA [Concomitant]
     Dosage: UNK
     Dates: start: 20010424
  12. SIMVASTATIN [Concomitant]
     Dosage: 40 MG, QD
     Route: 048
     Dates: start: 20010418
  13. LANSOPRAZOLE [Concomitant]
     Dosage: 30 MG, BEFORE MEALS
     Route: 048
     Dates: start: 20010418

REACTIONS (13)
  - RENAL IMPAIRMENT [None]
  - RENAL INJURY [None]
  - ANXIETY [None]
  - PAIN [None]
  - UNEVALUABLE EVENT [None]
  - MULTI-ORGAN FAILURE [None]
  - FEAR [None]
  - DEATH [None]
  - RENAL FAILURE [None]
  - INJURY [None]
  - EMOTIONAL DISTRESS [None]
  - STRESS [None]
  - ANHEDONIA [None]
